FAERS Safety Report 4351675-7 (Version None)
Quarter: 2004Q2

REPORT INFORMATION
  Report Type: 
  Country: None (occurrence: None)
  Receive Date: 20040429
  Receipt Date: 20040224
  Transmission Date: 20050107
  Serious: No
  Sender: FDA-Public Use
  Company Number: 2004-114248-NL

PATIENT
  Age: 32 Year
  Sex: Female
  Weight: 79.1 kg

DRUGS (2)
  1. NUVARING [Suspect]
     Indication: CONTRACEPTION
     Dosage: DF DAILY
     Dates: start: 20040215
  2. NUVARING [Suspect]
     Indication: HOT FLUSH
     Dosage: DF DAILY
     Dates: start: 20040215

REACTIONS (4)
  - ABDOMINAL DISTENSION [None]
  - HOT FLUSH [None]
  - METRORRHAGIA [None]
  - PELVIC PAIN [None]
